FAERS Safety Report 4993091-0 (Version None)
Quarter: 2006Q1

REPORT INFORMATION
  Report Type: 
  Country: None (occurrence: None)
  Receive Date: 20060313
  Receipt Date: 20051216
  Transmission Date: 20060701
  Serious: No
  Sender: FDA-Public Use
  Company Number: 2005-BP-21126BP

PATIENT
  Age: 47 Year
  Sex: Male

DRUGS (7)
  1. SPIRIVA [Suspect]
     Indication: EMPHYSEMA
     Dosage: 18 MCG (18 MCG,1 DAILY),IH
  2. ALBUTEROL SULFATE AUTOHALER [Concomitant]
  3. SLO-BID [Concomitant]
  4. AVAPRO [Concomitant]
  5. VISTARIL [Concomitant]
  6. PROTONIX [Concomitant]
  7. ANTIVERT [Concomitant]

REACTIONS (5)
  - ANXIETY [None]
  - DYSGEUSIA [None]
  - HEART RATE INCREASED [None]
  - NERVOUSNESS [None]
  - TACHYCARDIA [None]
